FAERS Safety Report 18503273 (Version 1)
Quarter: 2020Q4

REPORT INFORMATION
  Report Type: Report from Study
  Country: DE (occurrence: DE)
  Receive Date: 20201113
  Receipt Date: 20201113
  Transmission Date: 20210114
  Serious: Yes (Life-Threatening, Other)
  Sender: FDA-Public Use
  Company Number: DE-PFIZER INC-2020446759

PATIENT

DRUGS (5)
  1. BENZOYLECGONINE [Suspect]
     Active Substance: BENZOYLECGONINE
     Dosage: UNK
  2. MORPHINE SULFATE. [Suspect]
     Active Substance: MORPHINE SULFATE
     Dosage: UNK
  3. COCAINE [Suspect]
     Active Substance: COCAINE
     Dosage: UNK
  4. LEVOMETHADONE [Suspect]
     Active Substance: LEVOMETHADONE
     Dosage: UNK
  5. CATHINONE [Suspect]
     Active Substance: CATHINONE
     Dosage: UNK

REACTIONS (4)
  - Pneumothorax [Unknown]
  - Multiple organ dysfunction syndrome [Unknown]
  - Loss of consciousness [Unknown]
  - Toxicity to various agents [Unknown]
